FAERS Safety Report 5960913-6 (Version None)
Quarter: 2008Q4

REPORT INFORMATION
  Report Type: 
  Country: None (occurrence: None)
  Receive Date: 20081121
  Receipt Date: 20081113
  Transmission Date: 20090506
  Serious: Yes (Hospitalization, Other)
  Sender: FDA-Public Use
  Company Number: DE-JNJFOC-20081004474

PATIENT
  Sex: Male
  Weight: 54 kg

DRUGS (1)
  1. CONCERTA [Suspect]
     Indication: ATTENTION DEFICIT/HYPERACTIVITY DISORDER
     Dosage: 1-0-0
     Route: 048

REACTIONS (2)
  - HALLUCINATION [None]
  - SUICIDAL IDEATION [None]
